FAERS Safety Report 7475449-3 (Version None)
Quarter: 2011Q2

REPORT INFORMATION
  Report Type: 
  Country: None (occurrence: None)
  Receive Date: 20110512
  Receipt Date: 20110505
  Transmission Date: 20111010
  Serious: Yes (Hospitalization)
  Sender: FDA-Public Use
  Company Number: FR-PFIZER INC-2011096469

PATIENT
  Age: 53 Year
  Sex: Female

DRUGS (8)
  1. XYZAL [Suspect]
     Dosage: 5 MG, 1X/DAY
     Route: 048
     Dates: start: 20110331, end: 20110402
  2. INSULIN [Concomitant]
     Dosage: UNK
     Route: 058
     Dates: start: 20110317
  3. CLINDAMYCIN HCL [Suspect]
     Dosage: 600 MG, 3X/DAY
     Route: 048
     Dates: start: 20110325, end: 20110329
  4. OXYCODONE HCL [Suspect]
     Dosage: 5 MG, 2X/DAY
     Route: 048
     Dates: start: 20110326, end: 20110327
  5. CEFTRIAXONE [Suspect]
     Dosage: 2 G, 1X/DAY
     Route: 042
     Dates: start: 20110329, end: 20110406
  6. TRAMADOL HCL [Suspect]
     Dosage: 100 MG, 2X/DAY
     Route: 048
     Dates: start: 20110325, end: 20110402
  7. VANCOMYCIN [Suspect]
     Dosage: 2.5 G, 1X/DAY
     Route: 042
     Dates: start: 20110325, end: 20110406
  8. LANTUS [Concomitant]
     Dosage: 16 IU, 1X/DAY
     Route: 058

REACTIONS (1)
  - HEPATITIS CHOLESTATIC [None]
